FAERS Safety Report 5134221-X (Version None)
Quarter: 2006Q4

REPORT INFORMATION
  Report Type: 
  Country: None (occurrence: None)
  Receive Date: 20061018
  Receipt Date: 20061010
  Transmission Date: 20070319
  Serious: Yes (Life-Threatening, Hospitalization)
  Sender: FDA-Public Use
  Company Number: HQWYE862622AUG06

PATIENT
  Age: 72 Year
  Sex: Female

DRUGS (5)
  1. GEMTUZUMAB OZOGAMICIN (GEMTUZUMAB OZOGAMICIN, INJECTION)LOT NO: 301-30 [Suspect]
     Indication: ACUTE MYELOID LEUKAEMIA
     Dosage: 9.5 MG
     Dates: start: 20060809, end: 20060809
  2. FUROSEMIDE [Concomitant]
  3. MEROPENEM (MEROPENEM) [Concomitant]
  4. AMIKACIN [Concomitant]
  5. TEICOPLANIN (TEICOPLANIN) [Concomitant]

REACTIONS (7)
  - APLASIA [None]
  - NEUTROPENIA [None]
  - OLIGURIA [None]
  - PNEUMONITIS [None]
  - SEPTIC SHOCK [None]
  - SYNCOPE [None]
  - THROMBOCYTOPENIA [None]
